FAERS Safety Report 10957192 (Version 1)
Quarter: 2015Q1

REPORT INFORMATION
  Report Type: Spontaneous
  Country: US (occurrence: None)
  Receive Date: 20150226
  Receipt Date: 20150226
  Transmission Date: 20150721
  Serious: Yes (Hospitalization)
  Sender: FDA-Public Use
  Company Number: TAP2005Q00822

PATIENT
  Age: 67 Year
  Sex: Female

DRUGS (5)
  1. PREVACID [Suspect]
     Active Substance: LANSOPRAZOLE
     Indication: PRODUCT USED FOR UNKNOWN INDICATION
     Dosage: 300 MG, [SIC]
     Route: 048
     Dates: end: 20041102
  2. FENOFIBRATE (FENOFIBRATE) [Suspect]
     Active Substance: FENOFIBRATE
     Indication: PRODUCT USED FOR UNKNOWN INDICATION
     Route: 048
     Dates: end: 20041106
  3. COVERSYL [Suspect]
     Active Substance: PERINDOPRIL
     Indication: PRODUCT USED FOR UNKNOWN INDICATION
     Route: 048
     Dates: end: 20041106
  4. TRIMEBUTINE [Suspect]
     Active Substance: TRIMEBUTINE
     Indication: PRODUCT USED FOR UNKNOWN INDICATION
     Route: 048
     Dates: end: 20041106
  5. PANTOPRAZOLE (PANTOPRAZOLE) [Suspect]
     Active Substance: PANTOPRAZOLE SODIUM
     Indication: PRODUCT USED FOR UNKNOWN INDICATION
     Dates: start: 20141102, end: 20141106

REACTIONS (3)
  - Abdominal pain upper [None]
  - Vomiting [None]
  - Pancreatitis acute [None]

NARRATIVE: CASE EVENT DATE: 20041106
